FAERS Safety Report 9049079 (Version 2)
Quarter: 2013Q1

REPORT INFORMATION
  Report Type: Spontaneous
  Country: JP (occurrence: JP)
  Receive Date: 20130205
  Receipt Date: 20130213
  Transmission Date: 20140127
  Serious: Yes (Life-Threatening)
  Sender: FDA-Public Use
  Company Number: JP-ASTRAZENECA-2013SE07993

PATIENT
  Age: 80 Year
  Sex: Male

DRUGS (1)
  1. XYLOCAINE JELLY [Suspect]
     Indication: LOCAL ANAESTHESIA
     Dosage: DOSE UNKNOWN
     Route: 061
     Dates: start: 20130201, end: 20130201

REACTIONS (1)
  - Anaphylactic shock [Recovering/Resolving]
